FAERS Safety Report 13884737 (Version 2)
Quarter: 2017Q3

REPORT INFORMATION
  Report Type: Spontaneous
  Country: US (occurrence: US)
  Receive Date: 20170821
  Receipt Date: 20170921
  Transmission Date: 20171127
  Serious: No
  Sender: FDA-Public Use
  Company Number: US-ASTRAZENECA-2017SE82809

PATIENT
  Sex: Female

DRUGS (1)
  1. FARXIGA [Suspect]
     Active Substance: DAPAGLIFLOZIN PROPANEDIOL
     Dosage: UNKNOWN DOSE AND FREQUENCY
     Route: 048

REACTIONS (6)
  - Pollakiuria [Unknown]
  - Asthenia [Unknown]
  - Dehydration [Unknown]
  - Fungal infection [Unknown]
  - Limb discomfort [Unknown]
  - Feeling abnormal [Unknown]
